FAERS Safety Report 4766010-X (Version None)
Quarter: 2005Q3

REPORT INFORMATION
  Report Type: 
  Country: None (occurrence: None)
  Receive Date: 20050912
  Receipt Date: 20041203
  Transmission Date: 20060218
  Serious: Yes (Hospitalization)
  Sender: FDA-Public Use
  Company Number: GB-GLAXOSMITHKLINE-B0360748A

PATIENT
  Sex: Female

DRUGS (1)
  1. PAROXETINE HYDROCHLORIDE [Suspect]
     Route: 065
     Dates: start: 20011108, end: 20030901

REACTIONS (10)
  - CONFUSIONAL STATE [None]
  - DEHYDRATION [None]
  - DRUG WITHDRAWAL SYNDROME [None]
  - FATIGUE [None]
  - NAUSEA [None]
  - PARAESTHESIA [None]
  - SUICIDAL IDEATION [None]
  - TEARFULNESS [None]
  - VOMITING [None]
  - WEIGHT DECREASED [None]
